FAERS Safety Report 25529454 (Version 2)
Quarter: 2025Q3

REPORT INFORMATION
  Report Type: Spontaneous
  Country: GB (occurrence: GB)
  Receive Date: 20250708
  Receipt Date: 20250721
  Transmission Date: 20251020
  Serious: Yes (Other)
  Sender: MYLAN
  Company Number: GB-MYLANLABS-2024M1061397

PATIENT
  Age: 33 Year
  Sex: Female
  Weight: 84 kg

DRUGS (5)
  1. CLOZARIL [Suspect]
     Active Substance: CLOZAPINE
     Indication: Borderline personality disorder
     Dosage: 275 MILLIGRAM, BID (IN DIVIDED DOSE)
     Dates: start: 20231106
  2. CLOZARIL [Suspect]
     Active Substance: CLOZAPINE
     Indication: Schizophrenia
  3. LITHIUM [Concomitant]
     Active Substance: LITHIUM
     Dosage: 600 MILLIGRAM, QD (ONCE DAILY)
     Dates: end: 20250326
  4. TRAZODONE [Concomitant]
     Active Substance: TRAZODONE HYDROCHLORIDE
     Dosage: 300 MILLIGRAM, QD (ONCE A DAY)
  5. QUETIAPINE [Concomitant]
     Active Substance: QUETIAPINE

REACTIONS (14)
  - Hypothyroidism [Unknown]
  - Eating disorder [Recovered/Resolved]
  - Decreased appetite [Recovered/Resolved]
  - Non-high-density lipoprotein cholesterol increased [Unknown]
  - Anaemia [Recovering/Resolving]
  - Low density lipoprotein increased [Not Recovered/Not Resolved]
  - Inflammatory marker increased [Unknown]
  - Hypochromic anaemia [Unknown]
  - Iron deficiency anaemia [Unknown]
  - Blood cholesterol increased [Unknown]
  - Blood triglycerides increased [Unknown]
  - Diarrhoea [Recovered/Resolved]
  - Vomiting [Recovered/Resolved]
  - Off label use [Unknown]

NARRATIVE: CASE EVENT DATE: 20240708
